FAERS Safety Report 10285362 (Version 2)
Quarter: 2014Q3

REPORT INFORMATION
  Report Type: Report from Study
  Country: US (occurrence: US)
  Receive Date: 20140708
  Receipt Date: 20140708
  Transmission Date: 20150326
  Serious: Yes (Other)
  Sender: FDA-Public Use
  Company Number: PHEH2014US011018

PATIENT
  Sex: Male

DRUGS (3)
  1. VITAMIN B COMPLEX WITH VITAMIN C   /02146701/ [Concomitant]
  2. GILENYA [Suspect]
     Active Substance: FINGOLIMOD HYDROCHLORIDE
     Indication: MULTIPLE SCLEROSIS
     Dosage: 0.5 MG, QD
     Route: 048
     Dates: start: 20130617
  3. BUDESONIDE. [Concomitant]
     Active Substance: BUDESONIDE

REACTIONS (14)
  - Urinary retention [Unknown]
  - Dizziness [Unknown]
  - Hypoaesthesia [Unknown]
  - Micturition urgency [Unknown]
  - Balance disorder [Recovering/Resolving]
  - White blood cell count decreased [Unknown]
  - Lymphocyte percentage decreased [Unknown]
  - Pain in extremity [Not Recovered/Not Resolved]
  - Fatigue [Unknown]
  - Lymphocyte count decreased [Unknown]
  - Crohn^s disease [Unknown]
  - Monocyte percentage increased [Unknown]
  - Movement disorder [Not Recovered/Not Resolved]
  - Central nervous system lesion [Recovering/Resolving]
